FAERS Safety Report 6251304-1 (Version None)
Quarter: 2009Q2

REPORT INFORMATION
  Report Type: 
  Country: None (occurrence: None)
  Receive Date: 20090630
  Receipt Date: 20090626
  Transmission Date: 20091009
  Serious: Yes (Death, Other)
  Sender: FDA-Public Use
  Company Number: PHHY2009CA13880

PATIENT
  Sex: Male

DRUGS (1)
  1. SANDOSTATIN LAR [Suspect]
     Indication: PANCREATIC CARCINOMA
     Dosage: 30 MG, QMO
     Route: 030
     Dates: start: 20070601, end: 20090529

REACTIONS (4)
  - DEATH [None]
  - DYSSTASIA [None]
  - GENERAL PHYSICAL HEALTH DETERIORATION [None]
  - WEIGHT DECREASED [None]
